FAERS Safety Report 4723485-X (Version None)
Quarter: 2005Q3

REPORT INFORMATION
  Report Type: 
  Country: None (occurrence: None)
  Receive Date: 20050725
  Receipt Date: 20050718
  Transmission Date: 20060218
  Serious: Yes (Hospitalization)
  Sender: FDA-Public Use
  Company Number: JP-JNJFOC-20050505673

PATIENT
  Age: 30 Year
  Sex: Male
  Weight: 40 kg

DRUGS (4)
  1. LEUKERAN [Suspect]
     Indication: DRUG USE FOR UNKNOWN INDICATION
     Dosage: 20MG PER DAY
     Route: 048
     Dates: start: 20050125
  2. INFLIXIMAB [Suspect]
     Indication: CROHN'S DISEASE
     Route: 042
     Dates: start: 20050201
  3. HEPARIN [Concomitant]
     Indication: ANTICOAGULANT THERAPY
  4. MESALAMINE [Concomitant]
     Dosage: 1000MG PER DAY
     Route: 048
     Dates: start: 20041214

REACTIONS (2)
  - PNEUMONIA [None]
  - PULMONARY ALVEOLAR HAEMORRHAGE [None]
